FAERS Safety Report 22389779 (Version 6)
Quarter: 2025Q2

REPORT INFORMATION
  Report Type: Spontaneous
  Country: BG (occurrence: BG)
  Receive Date: 20230531
  Receipt Date: 20250428
  Transmission Date: 20250716
  Serious: Yes (Hospitalization)
  Sender: MYLAN
  Company Number: BG-Accord-358308

PATIENT
  Age: 68 Year
  Sex: Female
  Weight: 96.8 kg

DRUGS (20)
  1. LENALIDOMIDE [Suspect]
     Active Substance: LENALIDOMIDE
     Indication: Diffuse large B-cell lymphoma
     Dosage: 25 MILLIGRAM, QD
     Route: 048
     Dates: start: 20230328, end: 20230417
  2. LENALIDOMIDE [Suspect]
     Active Substance: LENALIDOMIDE
     Dosage: 25 MILLIGRAM, QD
     Dates: start: 20230328, end: 20230417
  3. LENALIDOMIDE [Suspect]
     Active Substance: LENALIDOMIDE
     Dosage: 25 MILLIGRAM, QD
     Dates: start: 20230328, end: 20230417
  4. LENALIDOMIDE [Suspect]
     Active Substance: LENALIDOMIDE
     Dosage: 25 MILLIGRAM, QD
     Route: 048
     Dates: start: 20230328, end: 20230417
  5. LENALIDOMIDE [Suspect]
     Active Substance: LENALIDOMIDE
     Dosage: 25 MILLIGRAM, QD
     Route: 048
     Dates: start: 20230503, end: 20230523
  6. LENALIDOMIDE [Suspect]
     Active Substance: LENALIDOMIDE
     Dosage: 25 MILLIGRAM, QD
     Dates: start: 20230503, end: 20230523
  7. LENALIDOMIDE [Suspect]
     Active Substance: LENALIDOMIDE
     Dosage: 25 MILLIGRAM, QD
     Dates: start: 20230503, end: 20230523
  8. LENALIDOMIDE [Suspect]
     Active Substance: LENALIDOMIDE
     Dosage: 25 MILLIGRAM, QD
     Route: 048
     Dates: start: 20230503, end: 20230523
  9. TAFASITAMAB [Concomitant]
     Active Substance: TAFASITAMAB
     Indication: Diffuse large B-cell lymphoma
     Dosage: 1160 MILLIGRAM, QW
     Route: 065
     Dates: start: 20230328, end: 20230425
  10. TAFASITAMAB [Concomitant]
     Active Substance: TAFASITAMAB
     Dosage: 1160 MILLIGRAM, QW
     Dates: start: 20230328, end: 20230425
  11. TAFASITAMAB [Concomitant]
     Active Substance: TAFASITAMAB
     Dosage: 1160 MILLIGRAM, QW
     Dates: start: 20230328, end: 20230425
  12. TAFASITAMAB [Concomitant]
     Active Substance: TAFASITAMAB
     Dosage: 1160 MILLIGRAM, QW
     Route: 065
     Dates: start: 20230328, end: 20230425
  13. TAFASITAMAB [Concomitant]
     Active Substance: TAFASITAMAB
     Route: 065
  14. TAFASITAMAB [Concomitant]
     Active Substance: TAFASITAMAB
  15. TAFASITAMAB [Concomitant]
     Active Substance: TAFASITAMAB
  16. TAFASITAMAB [Concomitant]
     Active Substance: TAFASITAMAB
     Route: 065
  17. ASPIRIN [Concomitant]
     Active Substance: ASPIRIN
  18. ASPIRIN [Concomitant]
     Active Substance: ASPIRIN
     Route: 065
  19. ASPIRIN [Concomitant]
     Active Substance: ASPIRIN
     Route: 065
  20. ASPIRIN [Concomitant]
     Active Substance: ASPIRIN

REACTIONS (2)
  - Deep vein thrombosis [Recovering/Resolving]
  - Off label use [Unknown]

NARRATIVE: CASE EVENT DATE: 20230420
